FAERS Safety Report 17190036 (Version 1)
Quarter: 2019Q4

REPORT INFORMATION
  Report Type: Report from Study
  Country: None (occurrence: TR)
  Receive Date: 20191223
  Receipt Date: 20191223
  Transmission Date: 20200122
  Serious: Yes (Hospitalization)
  Sender: FDA-Public Use
  Company Number: TR-ABBVIE-19K-161-3203353-00

PATIENT
  Sex: Male
  Weight: 90 kg

DRUGS (1)
  1. DUODOPA [Suspect]
     Active Substance: CARBIDOPA\LEVODOPA
     Indication: PARKINSON^S DISEASE
     Dosage: MD (ML): 10.00 CD(ML): 3.50 ED (ML): 2.50
     Route: 050
     Dates: start: 20161226

REACTIONS (1)
  - Pneumonia [Recovered/Resolved]
